FAERS Safety Report 9986984 (Version 2)
Quarter: 2014Q2

REPORT INFORMATION
  Report Type: Spontaneous
  Country: US (occurrence: US)
  Receive Date: 20140307
  Receipt Date: 20140501
  Transmission Date: 20141212
  Serious: No
  Sender: FDA-Public Use
  Company Number: US-AMGEN-USASP2014013605

PATIENT
  Age: 77 Year
  Sex: Male
  Weight: 57.14 kg

DRUGS (1)
  1. ENBREL [Suspect]
     Indication: PSORIASIS
     Dosage: 50 MG, QWK
     Route: 065
     Dates: start: 20130501

REACTIONS (3)
  - Gingival inflammation [Recovered/Resolved]
  - Gingival pain [Recovered/Resolved]
  - Loose tooth [Unknown]
